FAERS Safety Report 5711785-6 (Version None)
Quarter: 2008Q2

REPORT INFORMATION
  Report Type: 
  Country: None (occurrence: None)
  Receive Date: 20080421
  Receipt Date: 20080409
  Transmission Date: 20081010
  Serious: Yes (Other)
  Sender: FDA-Public Use
  Company Number: US-PFIZER INC-2008031499

PATIENT
  Sex: Male
  Weight: 123.63 kg

DRUGS (4)
  1. CHANTIX [Suspect]
     Indication: SMOKING CESSATION THERAPY
  2. OXYCODONE HCL [Concomitant]
  3. DIAZEPAM [Concomitant]
  4. PRILOSEC [Concomitant]

REACTIONS (2)
  - BLOOD GLUCOSE INCREASED [None]
  - DIABETES MELLITUS [None]
